FAERS Safety Report 6177277-8 (Version None)
Quarter: 2009Q2

REPORT INFORMATION
  Report Type: 
  Country: None (occurrence: None)
  Receive Date: 20090504
  Receipt Date: 20090424
  Transmission Date: 20091009
  Serious: Yes (Other)
  Sender: FDA-Public Use
  Company Number: TR-BAYER-200915252GPV

PATIENT
  Age: 35 Year
  Sex: Female

DRUGS (2)
  1. AVELOX [Suspect]
     Indication: BRONCHITIS
     Route: 048
  2. BENICAL COLD [Concomitant]
     Indication: DRUG USE FOR UNKNOWN INDICATION
     Route: 065

REACTIONS (2)
  - DRUG TOXICITY [None]
  - HYPOTENSION [None]
